FAERS Safety Report 24350118 (Version 1)
Quarter: 2024Q3

REPORT INFORMATION
  Report Type: Spontaneous
  Country: CN (occurrence: CN)
  Receive Date: 20240923
  Receipt Date: 20240923
  Transmission Date: 20241016
  Serious: Yes (Other)
  Sender: JIANGSU HENGRUI MEDICINE
  Company Number: CN-Jiangsu Hengrui Medicine Co., Ltd.-2161910

PATIENT
  Age: 77 Year
  Sex: Male
  Weight: 47 kg

DRUGS (5)
  1. OXALIPLATIN [Suspect]
     Active Substance: OXALIPLATIN
     Indication: Colon cancer
     Dates: start: 20240724, end: 20240724
  2. OXALIPLATIN [Suspect]
     Active Substance: OXALIPLATIN
     Indication: Lymphoma
  3. OXALIPLATIN [Suspect]
     Active Substance: OXALIPLATIN
     Indication: Gastric cancer
  4. SINTILIMAB [Suspect]
     Active Substance: SINTILIMAB
     Dates: start: 20240726, end: 20240726
  5. CAPECITABINE [Suspect]
     Active Substance: CAPECITABINE
     Dates: start: 20240724, end: 20240806

REACTIONS (3)
  - Rash pustular [Recovering/Resolving]
  - Rash [Recovering/Resolving]
  - Pruritus [Recovering/Resolving]

NARRATIVE: CASE EVENT DATE: 20240902
